FAERS Safety Report 7395170-X (Version None)
Quarter: 2011Q2

REPORT INFORMATION
  Report Type: 
  Country: None (occurrence: None)
  Receive Date: 20110405
  Receipt Date: 20110324
  Transmission Date: 20111010
  Serious: Yes (Other)
  Sender: FDA-Public Use
  Company Number: PHHY2011US25734

PATIENT
  Sex: Male

DRUGS (4)
  1. OMEPRAZOLE [Concomitant]
     Dosage: 20 MG, UNK
     Route: 042
  2. MULTIVITAMIN [Concomitant]
  3. DIOVAN [Suspect]
     Dosage: 160 MG, QD
  4. SIMCOR [Concomitant]

REACTIONS (3)
  - WRONG TECHNIQUE IN DRUG USAGE PROCESS [None]
  - NEOPLASM MALIGNANT [None]
  - DIZZINESS [None]
